FAERS Safety Report 25621511 (Version 1)
Quarter: 2025Q3

REPORT INFORMATION
  Report Type: Report from Study
  Country: EU (occurrence: EU)
  Receive Date: 20250730
  Receipt Date: 20250730
  Transmission Date: 20251021
  Serious: Yes (Other)
  Sender: RANBAXY
  Company Number: EU-SUN PHARMACEUTICAL INDUSTRIES LTD-2025R1-519546

PATIENT
  Age: 42 Year
  Sex: Male

DRUGS (2)
  1. AMOXICILLIN [Suspect]
     Active Substance: AMOXICILLIN
     Indication: Endocarditis
     Dosage: 9 GRAM, DAILY
     Route: 042
  2. GENTAMICIN [Suspect]
     Active Substance: GENTAMICIN
     Indication: Endocarditis
     Route: 065

REACTIONS (1)
  - Disease recurrence [Unknown]
